FAERS Safety Report 7973889-7 (Version None)
Quarter: 2011Q4

REPORT INFORMATION
  Report Type: 
  Country: None (occurrence: None)
  Receive Date: 20111209
  Receipt Date: 20111129
  Transmission Date: 20120403
  Serious: Yes (Life-Threatening)
  Sender: FDA-Public Use
  Company Number: 1124038

PATIENT
  Age: 75 Year
  Sex: Male

DRUGS (7)
  1. PANTOPRAZOLE SODIUM [Suspect]
     Indication: PROPHYLAXIS AGAINST GASTROINTESTINAL ULCER
     Dosage: 20 MG, ORAL
     Route: 048
     Dates: start: 20090101, end: 20111107
  2. VANCOMYCIN HCL [Suspect]
     Indication: ENDOCARDITIS
     Dosage: 2 GRAMS, INTRAVENOUS
     Route: 042
     Dates: start: 20111007, end: 20111102
  3. ROCEPHIN [Suspect]
     Indication: ENDOCARDITIS
     Dosage: 6 GRAMS, INTRAVENOUS
     Route: 042
     Dates: start: 20111102, end: 20111104
  4. RIFADIN [Suspect]
     Indication: ENDOCARDITIS
     Dosage: 600 MG MILLIGRAMS, INTRAVENOUS
     Route: 042
     Dates: start: 20111008, end: 20111102
  5. CUBICIN [Suspect]
     Indication: ENDOCARDITIS
     Dosage: 300 MG, INTRAVENOUS
     Route: 042
     Dates: start: 20111102, end: 20111105
  6. GENTAMICIN SULFATE [Suspect]
     Indication: ENDOCARDITIS
     Dosage: 240 MG, INTRAVENOUS
     Route: 042
     Dates: start: 20111106, end: 20111108
  7. GENTAMICIN SULFATE [Suspect]
     Indication: ENDOCARDITIS
     Dosage: 240 MG, INTRAVENOUS
     Route: 042
     Dates: start: 20111007, end: 20111020

REACTIONS (1)
  - DRUG RASH WITH EOSINOPHILIA AND SYSTEMIC SYMPTOMS [None]
